FAERS Safety Report 4471530-1 (Version None)
Quarter: 2004Q4

REPORT INFORMATION
  Report Type: 
  Country: None (occurrence: None)
  Receive Date: 20041012
  Receipt Date: 20041004
  Transmission Date: 20050328
  Serious: Yes (Other)
  Sender: FDA-Public Use
  Company Number: PHEH2004US10640

PATIENT
  Sex: 0

DRUGS (1)
  1. AREDIA [Suspect]
     Dosage: UNK/UNK

REACTIONS (1)
  - OSTEOMYELITIS [None]
